FAERS Safety Report 6366778-5 (Version None)
Quarter: 2009Q3

REPORT INFORMATION
  Report Type: 
  Country: None (occurrence: None)
  Receive Date: 20090915
  Receipt Date: 20090903
  Transmission Date: 20100115
  Serious: Yes (Hospitalization, Other)
  Sender: FDA-Public Use
  Company Number: GXKR2008GB10966

PATIENT
  Age: 55 Year
  Sex: Female

DRUGS (1)
  1. AMOXICILLIN AND CLAVULANATE POTASSIUM [Suspect]
     Indication: PNEUMONIA
     Dosage: 3.75 MG, ONCE/SINGLE, ORAL, 750 MG, ONCE/SINGLE, ORAL
     Route: 048

REACTIONS (8)
  - ABNORMAL BEHAVIOUR [None]
  - ACUTE PSYCHOSIS [None]
  - AGITATION [None]
  - CONFUSIONAL STATE [None]
  - DISORIENTATION [None]
  - HALLUCINATION, VISUAL [None]
  - PERSECUTORY DELUSION [None]
  - SPEECH DISORDER [None]
